FAERS Safety Report 9984956 (Version 1)
Quarter: 2014Q1

REPORT INFORMATION
  Report Type: Report from Study
  Country: US (occurrence: US)
  Receive Date: 20140307
  Receipt Date: 20140307
  Transmission Date: 20141002
  Serious: No
  Sender: FDA-Public Use
  Company Number: US-ABBVIE-14P-163-1186382-00

PATIENT
  Age: 44 Year
  Sex: Female

DRUGS (14)
  1. HUMIRA [Suspect]
     Indication: CROHN^S DISEASE
     Dates: start: 20131126
  2. LORATADINE [Concomitant]
     Indication: SEASONAL ALLERGY
  3. POTASSIUM [Concomitant]
     Indication: PRODUCT USED FOR UNKNOWN INDICATION
  4. HYDROCODONE [Concomitant]
     Indication: PAIN
     Dosage: 325MG 1/2 AS NEEDED
  5. HYDROCODONE [Concomitant]
     Indication: PRODUCT USED FOR UNKNOWN INDICATION
  6. PREVACID [Concomitant]
     Indication: GASTROOESOPHAGEAL REFLUX DISEASE
  7. RANITIDINE [Concomitant]
     Indication: GASTROOESOPHAGEAL REFLUX DISEASE
  8. LIALDA [Concomitant]
     Indication: CROHN^S DISEASE
  9. ELAVIL [Concomitant]
     Indication: CROHN^S DISEASE
     Dosage: 25 MG HALF DAILY
  10. B COMPLEX WITH VITAMIN C [Concomitant]
     Indication: PRODUCT USED FOR UNKNOWN INDICATION
  11. VITAMIN D3 [Concomitant]
     Indication: PRODUCT USED FOR UNKNOWN INDICATION
  12. VITAMIN B12 [Concomitant]
     Indication: CROHN^S DISEASE
     Route: 058
  13. ENTOCORT EC [Concomitant]
     Indication: CROHN^S DISEASE
  14. IMURAN [Concomitant]
     Indication: CROHN^S DISEASE

REACTIONS (5)
  - Fatigue [Not Recovered/Not Resolved]
  - Pyrexia [Not Recovered/Not Resolved]
  - Myalgia [Not Recovered/Not Resolved]
  - Chest discomfort [Not Recovered/Not Resolved]
  - Dyspnoea [Not Recovered/Not Resolved]
